FAERS Safety Report 15153406 (Version 1)
Quarter: 2018Q3

REPORT INFORMATION
  Report Type: Spontaneous
  Country: US (occurrence: US)
  Receive Date: 20180619
  Receipt Date: 20180619
  Transmission Date: 20181010
  Serious: Yes (Other)
  Sender: FDA-Public Use
  Company Number: None

PATIENT
  Age: 66 Year
  Sex: Female
  Weight: 49.9 kg

DRUGS (7)
  1. ABILIFY [Suspect]
     Active Substance: ARIPIPRAZOLE
     Indication: DRUG THERAPY
     Dosage: 1 PILL 1 TIME AM ORALLY?          ?
     Route: 048
     Dates: start: 20180413, end: 20180429
  2. CHOLESTEROL MEDS [Concomitant]
  3. VICKS NYQUIL [Concomitant]
     Active Substance: ACETAMINOPHEN\DEXTROMETHORPHAN HYDROBROMIDE\DOXYLAMINE SUCCINATE
  4. VALIUM [Concomitant]
     Active Substance: DIAZEPAM
  5. PROZAC [Concomitant]
     Active Substance: FLUOXETINE HYDROCHLORIDE
  6. ASCOMP [Concomitant]
  7. ALLERGY PILLS [Concomitant]
     Active Substance: UNSPECIFIED INGREDIENT

REACTIONS (16)
  - Crying [None]
  - Speech disorder [None]
  - Nervousness [None]
  - Disturbance in attention [None]
  - Fall [None]
  - Memory impairment [None]
  - Dizziness [None]
  - Confusional state [None]
  - Headache [None]
  - Fatigue [None]
  - Hunger [None]
  - Anxiety [None]
  - Depression [None]
  - Gait disturbance [None]
  - Hallucinations, mixed [None]
  - Dyslexia [None]

NARRATIVE: CASE EVENT DATE: 20180413
